FAERS Safety Report 5770827-2 (Version None)
Quarter: 2008Q2

REPORT INFORMATION
  Report Type: 
  Country: None (occurrence: None)
  Receive Date: 20080613
  Receipt Date: 20080515
  Transmission Date: 20081010
  Serious: No
  Sender: FDA-Public Use
  Company Number: US-ABBOTT-08P-163-0451984-00

PATIENT
  Sex: Female
  Weight: 88.53 kg

DRUGS (4)
  1. HUMIRA [Suspect]
     Indication: PSORIASIS
     Route: 050
     Dates: start: 20070101
  2. METHOTREXATE [Concomitant]
     Indication: PSORIASIS
     Route: 048
  3. CLOBETASOL PROPIONATE SOL'N [Concomitant]
     Indication: PSORIASIS
     Route: 061
  4. TUBE OF SOMETHING FOR SCALP [Concomitant]
     Indication: PSORIASIS
     Route: 061

REACTIONS (3)
  - INJECTION SITE ERYTHEMA [None]
  - INJECTION SITE IRRITATION [None]
  - INJECTION SITE SWELLING [None]
